FAERS Safety Report 8107462-7 (Version None)
Quarter: 2012Q1

REPORT INFORMATION
  Report Type: 
  Country: None (occurrence: None)
  Receive Date: 20120202
  Receipt Date: 20120128
  Transmission Date: 20120608
  Serious: Yes (Other)
  Sender: FDA-Public Use
  Company Number: US-TEVA-320017USA

PATIENT
  Sex: Female

DRUGS (2)
  1. NUVIGIL [Suspect]
     Indication: NARCOLEPSY
     Dosage: QD
     Route: 048
     Dates: start: 20120125
  2. DULOXETIME HYDROCHLORIDE [Concomitant]
     Dates: start: 20120113

REACTIONS (2)
  - RASH ERYTHEMATOUS [None]
  - SKIN BURNING SENSATION [None]
